FAERS Safety Report 5216938-1 (Version None)
Quarter: 2007Q1

REPORT INFORMATION
  Report Type: 
  Country: None (occurrence: None)
  Receive Date: 20070124
  Receipt Date: 20070111
  Transmission Date: 20070707
  Serious: Yes (Death)
  Sender: FDA-Public Use
  Company Number: US-JNJFOC-20061205319

PATIENT
  Age: 51 Year
  Sex: Female

DRUGS (8)
  1. DURAGESIC-100 [Suspect]
     Indication: DRUG USE FOR UNKNOWN INDICATION
     Route: 062
  2. MORPHINE SUL INJ [Suspect]
     Route: 042
  3. MORPHINE SUL INJ [Suspect]
     Indication: BREAKTHROUGH PAIN
     Route: 042
  4. OXYCODONE HCL [Suspect]
     Indication: PAIN
     Dosage: EVERY 4 HOURS AS NEEDED
  5. GOLYTELY [Concomitant]
  6. MIRALAX [Concomitant]
  7. ATIVAN [Concomitant]
  8. NUTREN [Concomitant]
     Dosage: EVERY 8-12 HOURS

REACTIONS (6)
  - BLOOD GLUCOSE INCREASED [None]
  - GASTROOESOPHAGEAL REFLUX DISEASE [None]
  - ILEUS [None]
  - LETHARGY [None]
  - PLATELET COUNT INCREASED [None]
  - TONGUE NEOPLASM MALIGNANT STAGE UNSPECIFIED [None]
